FAERS Safety Report 7176955-1 (Version None)
Quarter: 2010Q4

REPORT INFORMATION
  Report Type: 
  Country: None (occurrence: None)
  Receive Date: 20101220
  Receipt Date: 20101213
  Transmission Date: 20110411
  Serious: Yes (Other)
  Sender: FDA-Public Use
  Company Number: US-JNJFOC-20100703775

PATIENT
  Sex: Female
  Weight: 70.31 kg

DRUGS (3)
  1. LEVAQUIN [Suspect]
     Indication: SINUSITIS
     Route: 048
  2. CIPROFLOXACIN HCL [Suspect]
     Indication: BACTERIAL INFECTION
     Route: 065
  3. METHYLPREDNISOLONE [Suspect]
     Indication: ANTIINFLAMMATORY THERAPY
     Route: 065

REACTIONS (1)
  - TENOSYNOVITIS STENOSANS [None]
